FAERS Safety Report 9884070 (Version 2)
Quarter: 2014Q1

REPORT INFORMATION
  Report Type: Spontaneous
  Country: US (occurrence: US)
  Receive Date: 20140210
  Receipt Date: 20140210
  Transmission Date: 20141002
  Serious: No
  Sender: FDA-Public Use
  Company Number: US-ALLERGAN-1316800US

PATIENT
  Age: 91 Year
  Sex: Female

DRUGS (10)
  1. BOTOX [Suspect]
     Indication: NEUROGENIC BLADDER
     Dosage: 100 UNITS, SINGLE
     Route: 030
     Dates: start: 20131015, end: 20131015
  2. TRAVATAN [Concomitant]
     Indication: INTRAOCULAR PRESSURE INCREASED
     Dosage: UNK
  3. AMLODIPINE [Concomitant]
     Indication: HYPERTENSION
     Dosage: UNK
  4. FAMOTIDINE [Concomitant]
     Indication: PRODUCT USED FOR UNKNOWN INDICATION
     Dosage: UNK
  5. METOPROLOL [Concomitant]
     Indication: HYPERTENSION
     Dosage: UNK
  6. HCTZ [Concomitant]
     Indication: PRODUCT USED FOR UNKNOWN INDICATION
     Dosage: UNK
  7. NAMENDA [Concomitant]
     Indication: DEMENTIA ALZHEIMER^S TYPE
     Dosage: UNK
  8. AZELASTINE [Concomitant]
     Indication: INTRAOCULAR PRESSURE INCREASED
     Dosage: UNK
  9. MACROBID                           /00024401/ [Concomitant]
     Indication: BACTERIURIA
     Dosage: UNK
     Dates: end: 20131014
  10. ANTIBIOTIC NOS [Concomitant]
     Indication: PRODUCT USED FOR UNKNOWN INDICATION

REACTIONS (6)
  - Fatigue [Not Recovered/Not Resolved]
  - Neck pain [Recovered/Resolved]
  - Pain [Recovering/Resolving]
  - Fatigue [Recovering/Resolving]
  - Pallor [Recovering/Resolving]
  - Decreased appetite [Recovering/Resolving]
